FAERS Safety Report 7306605-2 (Version None)
Quarter: 2011Q1

REPORT INFORMATION
  Report Type: 
  Country: None (occurrence: None)
  Receive Date: 20110222
  Receipt Date: 20110214
  Transmission Date: 20110831
  Serious: Yes (Other)
  Sender: FDA-Public Use
  Company Number: US-ROCHE-739209

PATIENT
  Sex: Male
  Weight: 90.7 kg

DRUGS (9)
  1. CELEXA [Concomitant]
  2. PREDNISONE [Concomitant]
  3. ULTRAM [Concomitant]
  4. ACCUTANE [Suspect]
     Route: 048
     Dates: start: 20020101, end: 20020201
  5. NEXIUM [Concomitant]
  6. ACCUTANE [Suspect]
     Indication: ACNE
     Route: 048
     Dates: start: 20011230
  7. BIAXIN [Concomitant]
  8. METOPROLOL [Concomitant]
  9. DILTIAZEM [Concomitant]

REACTIONS (5)
  - SUICIDAL IDEATION [None]
  - GASTROINTESTINAL INJURY [None]
  - COLITIS ULCERATIVE [None]
  - INFLAMMATORY BOWEL DISEASE [None]
  - IRRITABLE BOWEL SYNDROME [None]
